FAERS Safety Report 5031235-5 (Version None)
Quarter: 2006Q2

REPORT INFORMATION
  Report Type: 
  Country: None (occurrence: None)
  Receive Date: 20060621
  Receipt Date: 20060508
  Transmission Date: 20061013
  Serious: No
  Sender: FDA-Public Use
  Company Number: US-GLAXOSMITHKLINE-A0604703A

PATIENT
  Age: 57 Year
  Sex: Male

DRUGS (5)
  1. AVANDARYL [Suspect]
     Dosage: 4MG PER DAY
     Route: 048
  2. ZOLOFT [Concomitant]
  3. TRAZODONE HCL [Concomitant]
  4. ZETIA [Concomitant]
  5. UNKNOWN [Concomitant]

REACTIONS (1)
  - BLOOD GLUCOSE FLUCTUATION [None]
